FAERS Safety Report 21564018 (Version 5)
Quarter: 2022Q4

REPORT INFORMATION
  Report Type: Report from Study
  Country: DE (occurrence: None)
  Receive Date: 20221108
  Receipt Date: 20221128
  Transmission Date: 20230112
  Serious: Yes (Hospitalization)
  Sender: FDA-Public Use
  Company Number: DE-ROCHE-3213699

PATIENT
  Age: 80 Year
  Sex: Male
  Weight: 84.5 kg

DRUGS (4)
  1. ATEZOLIZUMAB [Suspect]
     Active Substance: ATEZOLIZUMAB
     Indication: Hepatocellular carcinoma
     Dosage: ON 20/SEP/2022, MOST RECENT DOSE OF ATEZOLIZUMAB PRIOR TO AE WAS ADMINISTERED (1200 MG).
     Route: 041
     Dates: start: 20220405
  2. BEVACIZUMAB [Suspect]
     Active Substance: BEVACIZUMAB
     Indication: Hepatocellular carcinoma
     Dosage: ON 30/AUG/2022, MOST RECENT DOSE OF BEVACIZUMAB PRIOR TO AE WAS ADMINISTERED (15 MG/KG).
     Route: 042
     Dates: start: 20220405
  3. LISINOPRIL [Concomitant]
     Active Substance: LISINOPRIL
     Indication: Nephritis
     Route: 048
     Dates: start: 20221101
  4. LISINOPRIL [Concomitant]
     Active Substance: LISINOPRIL
     Indication: Proteinuria

REACTIONS (1)
  - Nephritis [Not Recovered/Not Resolved]

NARRATIVE: CASE EVENT DATE: 20220920
